FAERS Safety Report 7781808-1 (Version None)
Quarter: 2011Q3

REPORT INFORMATION
  Report Type: 
  Country: None (occurrence: None)
  Receive Date: 20110927
  Receipt Date: 20110920
  Transmission Date: 20111222
  Serious: Yes (Other)
  Sender: FDA-Public Use
  Company Number: GB-GLAXOSMITHKLINE-B0749881A

PATIENT
  Age: 29 Year
  Sex: Female

DRUGS (2)
  1. QVAR 40 [Suspect]
     Indication: ASTHMA
     Route: 065
  2. VENTOLIN HFA [Suspect]
     Indication: ASTHMA
     Route: 065

REACTIONS (1)
  - ASTHMA [None]
